FAERS Safety Report 25524903 (Version 1)
Quarter: 2025Q3

REPORT INFORMATION
  Report Type: Spontaneous
  Country: EU (occurrence: EU)
  Receive Date: 20250707
  Receipt Date: 20250707
  Transmission Date: 20251021
  Serious: Yes (Hospitalization, Other)
  Sender: MYLAN
  Company Number: EU-MYLANLABS-2025M1056712

PATIENT
  Age: 67 Year
  Sex: Male

DRUGS (24)
  1. VANCOMYCIN [Suspect]
     Active Substance: VANCOMYCIN
     Indication: Clostridium difficile colitis
     Route: 065
  2. VANCOMYCIN [Suspect]
     Active Substance: VANCOMYCIN
     Indication: Staphylococcal sepsis
  3. VANCOMYCIN [Suspect]
     Active Substance: VANCOMYCIN
  4. VANCOMYCIN [Suspect]
     Active Substance: VANCOMYCIN
     Route: 065
  5. VANCOMYCIN [Suspect]
     Active Substance: VANCOMYCIN
     Route: 065
  6. VANCOMYCIN [Suspect]
     Active Substance: VANCOMYCIN
  7. VANCOMYCIN [Suspect]
     Active Substance: VANCOMYCIN
  8. VANCOMYCIN [Suspect]
     Active Substance: VANCOMYCIN
     Route: 065
  9. PIPERACILLIN SODIUM\TAZOBACTAM SODIUM [Suspect]
     Active Substance: PIPERACILLIN SODIUM\TAZOBACTAM SODIUM
     Indication: Staphylococcal sepsis
  10. PIPERACILLIN SODIUM\TAZOBACTAM SODIUM [Suspect]
     Active Substance: PIPERACILLIN SODIUM\TAZOBACTAM SODIUM
     Route: 065
  11. PIPERACILLIN SODIUM\TAZOBACTAM SODIUM [Suspect]
     Active Substance: PIPERACILLIN SODIUM\TAZOBACTAM SODIUM
     Route: 065
  12. PIPERACILLIN SODIUM\TAZOBACTAM SODIUM [Suspect]
     Active Substance: PIPERACILLIN SODIUM\TAZOBACTAM SODIUM
  13. LINEZOLID [Suspect]
     Active Substance: LINEZOLID
     Indication: Staphylococcal sepsis
  14. LINEZOLID [Suspect]
     Active Substance: LINEZOLID
     Route: 065
  15. LINEZOLID [Suspect]
     Active Substance: LINEZOLID
     Route: 065
  16. LINEZOLID [Suspect]
     Active Substance: LINEZOLID
  17. LEVOFLOXACIN [Suspect]
     Active Substance: LEVOFLOXACIN
     Indication: Staphylococcal sepsis
  18. LEVOFLOXACIN [Suspect]
     Active Substance: LEVOFLOXACIN
     Route: 065
  19. LEVOFLOXACIN [Suspect]
     Active Substance: LEVOFLOXACIN
     Route: 065
  20. LEVOFLOXACIN [Suspect]
     Active Substance: LEVOFLOXACIN
  21. CLINDAMYCIN [Suspect]
     Active Substance: CLINDAMYCIN
     Indication: Staphylococcal sepsis
  22. CLINDAMYCIN [Suspect]
     Active Substance: CLINDAMYCIN
     Route: 065
  23. CLINDAMYCIN [Suspect]
     Active Substance: CLINDAMYCIN
     Route: 065
  24. CLINDAMYCIN [Suspect]
     Active Substance: CLINDAMYCIN

REACTIONS (3)
  - Clostridium difficile colitis [Unknown]
  - Megacolon [Unknown]
  - Treatment failure [Unknown]
